FAERS Safety Report 22342854 (Version 1)
Quarter: 2023Q2

REPORT INFORMATION
  Report Type: Spontaneous
  Country: GB (occurrence: GB)
  Receive Date: 20230519
  Receipt Date: 20230519
  Transmission Date: 20230722
  Serious: Yes (Other)
  Sender: FDA-Public Use
  Company Number: None

PATIENT
  Age: 88 Year
  Sex: Female

DRUGS (18)
  1. EZETIMIBE [Suspect]
     Active Substance: EZETIMIBE
     Indication: Product used for unknown indication
     Dosage: 10 MILLIGRAM, QD (PER DAY) (TABLET)
     Route: 065
     Dates: start: 20230426
  2. ASPIRIN [Concomitant]
     Active Substance: ASPIRIN
     Indication: Product used for unknown indication
     Dosage: UNK
     Route: 065
  3. ATORVASTATIN [Concomitant]
     Active Substance: ATORVASTATIN
     Indication: Product used for unknown indication
     Dosage: 80 MILLIGRAM, QD (PER DAY)
     Route: 065
  4. BISOPROLOL [Concomitant]
     Active Substance: BISOPROLOL
     Indication: Product used for unknown indication
     Dosage: 5 MILLIGRAM, QD (PER DAY)
     Route: 065
  5. CALCIUM\CHOLECALCIFEROL [Concomitant]
     Active Substance: CALCIUM\CHOLECALCIFEROL
     Indication: Product used for unknown indication
     Dosage: 1 DOSAGE FORM, BID
     Route: 065
  6. CODEINE [Concomitant]
     Active Substance: CODEINE
     Indication: Analgesic therapy
     Dosage: 30 MILLIGRAM, PRN (ONE OR TWO TO BE TAKEN UPTO 4 TIMES DAILY. MAXIMUM 8 IN 24 HOURS- ON DIHYDROCODEI
     Route: 065
  7. DERMOL [Concomitant]
     Active Substance: BENZALKONIUM CHLORIDE\CHLORHEXIDINE HYDROCHLORIDE\ISOPROPYL MYRISTATE\PARAFFIN
     Indication: Product used for unknown indication
     Dosage: UNK, (APPLY TO THE SKIN OR USE AS A SOAP SUBSTITUTE)
     Route: 065
  8. DIGOXIN [Concomitant]
     Active Substance: DIGOXIN
     Indication: Product used for unknown indication
     Dosage: 6.25 MICROGRAM, QD (PER DAY)
     Route: 065
  9. DIHYDROCODEINE [Concomitant]
     Active Substance: DIHYDROCODEINE
     Indication: Product used for unknown indication
     Dosage: UNK
     Route: 065
  10. GUAIACOL [Concomitant]
     Active Substance: GUAIACOL
     Indication: Product used for unknown indication
     Dosage: UNK
     Route: 065
  11. IBUPROFEN [Concomitant]
     Active Substance: IBUPROFEN
     Indication: Product used for unknown indication
     Dosage: UNK
     Route: 065
  12. METFORMIN [Concomitant]
     Active Substance: METFORMIN HYDROCHLORIDE
     Indication: Product used for unknown indication
     Dosage: 1000 MILLIGRAM, QD (PER DAY)
     Route: 065
  13. ACETAMINOPHEN [Concomitant]
     Active Substance: ACETAMINOPHEN
     Indication: Product used for unknown indication
     Dosage: 2 DOSAGE FORM, QID (2 FOUR TIMES A DAY)
     Route: 065
  14. Paracetamol and Dihydrocodeine [Concomitant]
     Indication: Product used for unknown indication
     Dosage: UNK
     Route: 065
  15. ALBUTEROL [Concomitant]
     Active Substance: ALBUTEROL
     Indication: Product used for unknown indication
     Dosage: UNK, 100UG/DOSE CFC FREE ONE OR TWO PUFFS UP TO FOUR TIMES A DAY 1 X 200 DOSE - USES MAINLY IN SUMME
  16. TERPIN [Concomitant]
     Active Substance: TERPIN
     Indication: Product used for unknown indication
     Dosage: UNK
     Route: 065
  17. VITAMIN D3 [Concomitant]
     Active Substance: CHOLECALCIFEROL
     Indication: Product used for unknown indication
     Dosage: 1 DOSAGE FORM (PER MONTH) (1ST OF EACH MONTH, 20,000 UNIT)
     Route: 065
  18. WARFARIN [Concomitant]
     Active Substance: WARFARIN
     Indication: Product used for unknown indication
     Dosage: UNK (LAST INR 7/2/23 3.4. DOSE 4MG MWF 3MG TTSS AF)
     Route: 065

REACTIONS (1)
  - Vomiting [Recovered/Resolved]
